FAERS Safety Report 7628875-3 (Version None)
Quarter: 2011Q3

REPORT INFORMATION
  Report Type: 
  Country: None (occurrence: None)
  Receive Date: 20110722
  Receipt Date: 20110714
  Transmission Date: 20111222
  Serious: Yes (Hospitalization)
  Sender: FDA-Public Use
  Company Number: JP-BRISTOL-MYERS SQUIBB COMPANY-15905870

PATIENT
  Age: 63 Year
  Sex: Male

DRUGS (5)
  1. CANDESARTAN CILEXETIL [Concomitant]
  2. GLIMICRON [Concomitant]
  3. WARFARIN SODIUM [Concomitant]
  4. BEPRICOR [Concomitant]
  5. METFORMIN HCL [Suspect]
     Indication: DIABETES MELLITUS
     Route: 048
     Dates: start: 20110101

REACTIONS (1)
  - HEPATIC FUNCTION ABNORMAL [None]
